FAERS Safety Report 9403228 (Version 1)
Quarter: 2013Q3

REPORT INFORMATION
  Report Type: Spontaneous
  Country: US (occurrence: None)
  Receive Date: 20130715
  Receipt Date: 20130715
  Transmission Date: 20140515
  Serious: Yes (Hospitalization)
  Sender: FDA-Public Use
  Company Number: None

PATIENT
  Age: 60 Year
  Sex: Male

DRUGS (2)
  1. FUROSEMIDE [Suspect]
     Indication: ASCITES
     Route: 048
     Dates: start: 20130425, end: 20130506
  2. SPIRONOLACTONE [Suspect]
     Indication: ASCITES
     Route: 048
     Dates: start: 20130425, end: 20130506

REACTIONS (4)
  - Orthostatic hypotension [None]
  - Hypovolaemia [None]
  - Fall [None]
  - Blood creatinine increased [None]
